FAERS Safety Report 9753600 (Version 2)
Quarter: 2014Q1

REPORT INFORMATION
  Report Type: Spontaneous
  Country: BR (occurrence: BR)
  Receive Date: 20131213
  Receipt Date: 20140110
  Transmission Date: 20141002
  Serious: Yes (Hospitalization)
  Sender: FDA-Public Use
  Company Number: PHHY2013BR145767

PATIENT
  Age: 83 Year
  Sex: Female

DRUGS (3)
  1. ONBREZ [Suspect]
     Dosage: UNK
  2. BRASART [Suspect]
     Dosage: 160 MG, UNK
  3. DAXAS [Suspect]
     Dosage: 500 MG, UNK

REACTIONS (3)
  - Dyspnoea [Unknown]
  - Throat irritation [Unknown]
  - Cough [Unknown]
